FAERS Safety Report 8859534 (Version 1)
Quarter: 2012Q4

REPORT INFORMATION
  Report Type: Report from Study
  Country: GB (occurrence: GB)
  Receive Date: 20121024
  Receipt Date: 20121024
  Transmission Date: 20130627
  Serious: Yes (Death)
  Sender: FDA-Public Use
  Company Number: GB-ROCHE-1145541

PATIENT
  Sex: Female
  Weight: 67 kg

DRUGS (1)
  1. RITUXIMAB [Suspect]
     Indication: RHEUMATOID ARTHRITIS
     Route: 065
     Dates: start: 20081104

REACTIONS (6)
  - Multi-organ failure [Fatal]
  - Sepsis [Fatal]
  - Skin ulcer [Fatal]
  - Cellulitis [Fatal]
  - Femoral neck fracture [Fatal]
  - Adrenocortical insufficiency acute [Fatal]
